FAERS Safety Report 9580301 (Version 1)
Quarter: 2013Q3

REPORT INFORMATION
  Report Type: Spontaneous
  Country: US (occurrence: None)
  Receive Date: 20130916
  Receipt Date: 20130916
  Transmission Date: 20140515
  Serious: Yes (Other)
  Sender: FDA-Public Use
  Company Number: JPI-P-024897

PATIENT
  Age: 22 Year
  Sex: Female
  Weight: 89.81 kg

DRUGS (1)
  1. XYREM [Suspect]
     Indication: CATAPLEXY
     Route: 048
     Dates: start: 2011

REACTIONS (12)
  - Weight decreased [None]
  - Reflux gastritis [None]
  - Depression [None]
  - Agitation [None]
  - Irritability [None]
  - Feeling of despair [None]
  - Decreased appetite [None]
  - Nausea [None]
  - Retching [None]
  - Fatigue [None]
  - Condition aggravated [None]
  - Somnolence [None]
